FAERS Safety Report 6833857-5 (Version None)
Quarter: 2010Q3

REPORT INFORMATION
  Report Type: 
  Country: None (occurrence: None)
  Receive Date: 20100712
  Receipt Date: 20070530
  Transmission Date: 20110219
  Serious: No
  Sender: FDA-Public Use
  Company Number: US-PFIZER INC-2007027964

PATIENT
  Sex: Female
  Weight: 57.15 kg

DRUGS (9)
  1. CHANTIX [Suspect]
     Indication: SMOKING CESSATION THERAPY
     Dates: start: 20070301
  2. ATENOLOL [Concomitant]
  3. HYDROCHLOROTHIAZIDE [Concomitant]
  4. FOSAMAX [Concomitant]
  5. CLONAZEPAM [Concomitant]
  6. LEXAPRO [Concomitant]
  7. MULTI-VITAMINS [Concomitant]
  8. CALCIUM [Concomitant]
  9. ACETYLSALICYLIC ACID [Concomitant]

REACTIONS (3)
  - FATIGUE [None]
  - HEADACHE [None]
  - NAUSEA [None]
